FAERS Safety Report 5232254-6 (Version None)
Quarter: 2007Q1

REPORT INFORMATION
  Report Type: 
  Country: None (occurrence: None)
  Receive Date: 20070207
  Receipt Date: 20070126
  Transmission Date: 20070707
  Serious: Yes (Hospitalization)
  Sender: FDA-Public Use
  Company Number: PHBS2007ES01763

PATIENT
  Age: 73 Year
  Sex: Female

DRUGS (10)
  1. TOBI [Suspect]
     Indication: PSEUDOMONAS INFECTION
     Dosage: 300 MG, Q12H
  2. CIPROFLOXACIN HCL [Concomitant]
     Indication: PSEUDOMONAS INFECTION
  3. BRONCHODILATORS [Concomitant]
  4. GLUCOCORTICOIDS [Concomitant]
  5. OXYGEN [Concomitant]
  6. ANGIOTENSIN CONVERTING ENZYME BLOCKERS [Concomitant]
     Indication: HYPERTENSION
  7. FRUSEMIDE [Concomitant]
     Indication: HYPERTENSION
  8. TRIMAXAZOLE [Concomitant]
     Indication: STAPHYLOCOCCAL INFECTION
     Dosage: 800/160 MG BID
  9. HEPARIN [Concomitant]
     Indication: PROPHYLAXIS
  10. AMOXICILINA + CLAVULANICO [Concomitant]

REACTIONS (9)
  - BLOOD CREATININE INCREASED [None]
  - BLOOD UREA INCREASED [None]
  - DRUG LEVEL INCREASED [None]
  - DRUG TOXICITY [None]
  - HAEMODIALYSIS [None]
  - OLIGURIA [None]
  - RENAL FAILURE [None]
  - URINARY SEDIMENT ABNORMAL [None]
  - URINARY SEDIMENT PRESENT [None]
